FAERS Safety Report 4339309-9 (Version None)
Quarter: 2004Q2

REPORT INFORMATION
  Report Type: 
  Country: None (occurrence: None)
  Receive Date: 20040412
  Receipt Date: 20040405
  Transmission Date: 20050107
  Serious: Yes (Other)
  Sender: FDA-Public Use
  Company Number: 2004207390US

PATIENT
  Sex: Female

DRUGS (2)
  1. BEXTRA [Suspect]
     Dosage: 10 MG,
  2. BLOOD PRESSURE MEDICINE [Concomitant]

REACTIONS (1)
  - CEREBROVASCULAR ACCIDENT [None]
